FAERS Safety Report 5404838-3 (Version None)
Quarter: 2007Q3

REPORT INFORMATION
  Report Type: 
  Country: None (occurrence: None)
  Receive Date: 20070803
  Receipt Date: 20070731
  Transmission Date: 20080115
  Serious: Yes (Other)
  Sender: FDA-Public Use
  Company Number: PHEH2007US10338

PATIENT
  Age: 77 Year
  Sex: Female
  Weight: 69.387 kg

DRUGS (2)
  1. ENABLEX [Suspect]
     Dosage: 7.5 MG, QD
     Route: 048
     Dates: start: 20070612, end: 20070618
  2. LOPRESSOR [Concomitant]
     Indication: HYPERTENSION
     Dosage: 50 MG, BID
     Route: 048
     Dates: start: 19980101, end: 20070701

REACTIONS (1)
  - ANGIOEDEMA [None]
